FAERS Safety Report 9470040 (Version 1)
Quarter: 2013Q3

REPORT INFORMATION
  Report Type: Spontaneous
  Country: US (occurrence: None)
  Receive Date: 20130820
  Receipt Date: 20130820
  Transmission Date: 20140515
  Serious: Yes (Other)
  Sender: FDA-Public Use
  Company Number: None

PATIENT
  Age: 66 Year
  Sex: Male

DRUGS (1)
  1. FORTEO [Suspect]
     Dosage: 20MCG, QD, SQ

REACTIONS (6)
  - Vomiting [None]
  - Insomnia [None]
  - Feeling cold [None]
  - Tremor [None]
  - Haematemesis [None]
  - Pneumonia [None]
